FAERS Safety Report 12992905 (Version 1)
Quarter: 2016Q4

REPORT INFORMATION
  Report Type: Spontaneous
  Country: AU (occurrence: AU)
  Receive Date: 20161202
  Receipt Date: 20161202
  Transmission Date: 20170207
  Serious: Yes (Other)
  Sender: FDA-Public Use
  Company Number: AU-CLINIGEN GROUP PLC/ CLINIGEN HEALTHCARE LTD-E2B_00005687

PATIENT
  Age: 43 Year
  Sex: Male
  Weight: 71 kg

DRUGS (12)
  1. ABACAVIR. [Suspect]
     Active Substance: ABACAVIR
     Indication: HIV INFECTION
     Route: 065
     Dates: start: 19990429
  2. LOSEC [Concomitant]
     Active Substance: OMEPRAZOLE
     Indication: OESOPHAGEAL DISORDER
  3. AZITHROMYCIN ANHYDROUS. [Concomitant]
     Active Substance: AZITHROMYCIN ANHYDROUS
  4. EFAVIRENZ [Suspect]
     Active Substance: EFAVIRENZ
     Indication: HIV INFECTION
     Route: 065
     Dates: start: 19990429
  5. RITONAVIR. [Suspect]
     Active Substance: RITONAVIR
     Indication: HIV INFECTION
     Route: 065
     Dates: start: 19990429
  6. FLUCONAZOLE. [Concomitant]
     Active Substance: FLUCONAZOLE
  7. TESTOSTERONE. [Concomitant]
     Active Substance: TESTOSTERONE
     Route: 030
  8. FOSCARNET?SODIUM [Suspect]
     Active Substance: FOSCARNET SODIUM
     Indication: PRODUCT USED FOR UNKNOWN INDICATION
     Route: 065
     Dates: start: 19990907, end: 19990927
  9. STAVUDINE. [Suspect]
     Active Substance: STAVUDINE
     Indication: HIV INFECTION
     Route: 065
     Dates: start: 19990429
  10. BACTRIM [Concomitant]
     Active Substance: SULFAMETHOXAZOLE\TRIMETHOPRIM
  11. ATENOLOL. [Concomitant]
     Active Substance: ATENOLOL
     Indication: ESSENTIAL HYPERTENSION
     Dates: start: 19990920
  12. COLONY STIMULATING FACTOR [Concomitant]
     Active Substance: UNSPECIFIED INGREDIENT
     Indication: AGRANULOCYTOSIS

REACTIONS (3)
  - Nephrolithiasis [Not Recovered/Not Resolved]
  - Hydroureter [Not Recovered/Not Resolved]
  - Acute kidney injury [Not Recovered/Not Resolved]

NARRATIVE: CASE EVENT DATE: 19990929
